FAERS Safety Report 5873295-5 (Version None)
Quarter: 2008Q3

REPORT INFORMATION
  Report Type: 
  Country: None (occurrence: None)
  Receive Date: 20080908
  Receipt Date: 20080828
  Transmission Date: 20090109
  Serious: Yes (Death, Other)
  Sender: FDA-Public Use
  Company Number: US-BAYER-US-2007-034249

PATIENT
  Age: 34 Year
  Sex: Female
  Weight: 73 kg

DRUGS (5)
  1. YASMIN [Suspect]
     Indication: CONTRACEPTION
     Route: 048
     Dates: start: 20030201
  2. NEXIUM [Concomitant]
     Indication: GASTROOESOPHAGEAL REFLUX DISEASE
  3. TYLENOL W/ CODEINE NO. 3 [Concomitant]
     Indication: DRUG USE FOR UNKNOWN INDICATION
  4. CLARITIN [Concomitant]
     Indication: DRUG USE FOR UNKNOWN INDICATION
  5. MARCAINE [Concomitant]
     Indication: ARTHRALGIA
     Dates: start: 20030922, end: 20030922

REACTIONS (18)
  - ARTHROPOD BITE [None]
  - BACK INJURY [None]
  - BLOOD POTASSIUM INCREASED [None]
  - CHEST PAIN [None]
  - CONTUSION [None]
  - DEEP VEIN THROMBOSIS [None]
  - DYSPNOEA [None]
  - EXCORIATION [None]
  - FALL [None]
  - FIBROCYSTIC BREAST DISEASE [None]
  - JOINT INJURY [None]
  - LIMB INJURY [None]
  - MUSCULOSKELETAL PAIN [None]
  - MYOSITIS [None]
  - PULMONARY EMBOLISM [None]
  - SUPRAVENTRICULAR TACHYCARDIA [None]
  - TENDONITIS [None]
  - UTERINE LEIOMYOMA [None]
